FAERS Safety Report 16320831 (Version 1)
Quarter: 2019Q2

REPORT INFORMATION
  Report Type: Spontaneous
  Country: TH (occurrence: TH)
  Receive Date: 20190516
  Receipt Date: 20190516
  Transmission Date: 20190711
  Serious: Yes (Other)
  Sender: FDA-Public Use
  Company Number: TH-IMPAX LABORATORIES, LLC-2019-IPXL-00944

PATIENT
  Age: 19 Year

DRUGS (2)
  1. TRAMADOL. [Suspect]
     Active Substance: TRAMADOL
     Indication: SUBSTANCE USE
     Dosage: 833 MILLIGRAM
     Route: 048
  2. PROMETHAZINE HYDROCHLORIDE. [Suspect]
     Active Substance: PROMETHAZINE HYDROCHLORIDE
     Indication: SUBSTANCE USE
     Dosage: UNK
     Route: 048

REACTIONS (3)
  - Serotonin syndrome [Unknown]
  - Drug abuse [Unknown]
  - Generalised tonic-clonic seizure [Unknown]
